FAERS Safety Report 5629412-5 (Version None)
Quarter: 2008Q1

REPORT INFORMATION
  Report Type: 
  Country: None (occurrence: None)
  Receive Date: 20080215
  Receipt Date: 20080215
  Transmission Date: 20080703
  Serious: Yes (Other)
  Sender: FDA-Public Use
  Company Number: None

PATIENT
  Age: 76 Year
  Sex: Male
  Weight: 90.7194 kg

DRUGS (4)
  1. ATENOLOL [Suspect]
     Indication: ATRIAL FIBRILLATION
     Dosage: 50MG  1 PER DAY  ORAL
     Route: 048
     Dates: start: 20070101, end: 20070730
  2. ATENOLOL [Suspect]
     Indication: HYPERTENSION
     Dosage: 50MG  1 PER DAY  ORAL
     Route: 048
     Dates: start: 20070101, end: 20070730
  3. NORPACE [Concomitant]
  4. ATENOLOL [Suspect]

REACTIONS (3)
  - DRUG INEFFECTIVE [None]
  - HYPERTENSION [None]
  - PHARMACEUTICAL PRODUCT COMPLAINT [None]
